FAERS Safety Report 25651029 (Version 1)
Quarter: 2025Q3

REPORT INFORMATION
  Report Type: Spontaneous
  Country: EU (occurrence: EU)
  Receive Date: 20250806
  Receipt Date: 20250806
  Transmission Date: 20251020
  Serious: Yes (Life-Threatening, Disabling, Other)
  Sender: FERRING
  Company Number: EU-FERRINGPH-2025FE04119

PATIENT

DRUGS (1)
  1. DINOPROSTONE [Suspect]
     Active Substance: DINOPROSTONE
     Indication: Labour induction
     Route: 065
     Dates: start: 20211205, end: 20211205

REACTIONS (6)
  - Uterine rupture [Unknown]
  - Post procedural complication [Unknown]
  - Post procedural complication [Not Recovered/Not Resolved]
  - Procedural complication [Unknown]
  - Contraindicated product administered [Unknown]
  - Drug monitoring procedure not performed [Unknown]

NARRATIVE: CASE EVENT DATE: 20211205
